FAERS Safety Report 8618864-4 (Version None)
Quarter: 2012Q3

REPORT INFORMATION
  Report Type: 
  Country: None (occurrence: None)
  Receive Date: 20120824
  Receipt Date: 20120815
  Transmission Date: 20120928
  Serious: Yes (Other)
  Sender: FDA-Public Use
  Company Number: GB-PFIZER INC-2012204581

PATIENT
  Sex: Male

DRUGS (5)
  1. AMIODARONE HCL [Suspect]
     Indication: HEART RATE IRREGULAR
     Dosage: UNK
     Dates: start: 20000101, end: 20100101
  2. LEVOTHYROXINE SODIUM [Concomitant]
     Dosage: UNK
  3. FUROSEMIDE [Concomitant]
     Dosage: UNK
  4. METFORMIN HCL [Concomitant]
     Dosage: UNK
  5. SIMVASTATIN [Concomitant]
     Dosage: UNK

REACTIONS (1)
  - LIVER INJURY [None]
